FAERS Safety Report 7800746-9 (Version None)
Quarter: 2011Q4

REPORT INFORMATION
  Report Type: 
  Country: None (occurrence: None)
  Receive Date: 20111006
  Receipt Date: 20110927
  Transmission Date: 20120403
  Serious: Yes (Hospitalization)
  Sender: FDA-Public Use
  Company Number: AT-VERTEX PHARMACEUTICALS INC.-AE-2011-000555

PATIENT
  Sex: Female
  Weight: 69 kg

DRUGS (10)
  1. COPEGUS [Suspect]
     Dosage: 400 MG AM, 200 MG PM
     Route: 048
     Dates: start: 20110520, end: 20110705
  2. SCHERIPROCT OINTMENT [Concomitant]
     Indication: HAEMORRHOIDS
     Route: 061
     Dates: start: 20110406
  3. PEGASYS [Suspect]
     Indication: HEPATITIS C
     Route: 058
     Dates: start: 20110323, end: 20110705
  4. ADVANTAN [Concomitant]
     Indication: RASH
     Route: 061
     Dates: start: 20110518
  5. NEXIUM [Concomitant]
     Indication: GASTRITIS
     Route: 048
  6. MYCOSTATIN [Concomitant]
     Indication: FUNGAL INFECTION
     Route: 048
     Dates: start: 20110406
  7. DIPRODERM AND SALIZYLIC [Concomitant]
     Indication: RASH
     Route: 061
     Dates: start: 20110406
  8. COPEGUS [Suspect]
     Indication: HEPATITIS C
     Dosage: 600 MG AM, 400 MG PM
     Route: 048
     Dates: start: 20110323, end: 20110519
  9. METOCLOPRAMIDE HYDROCHLORIDE [Concomitant]
     Indication: DECREASED APPETITE
     Route: 048
     Dates: start: 20110715
  10. VX-950 [Suspect]
     Indication: HEPATITIS C
     Route: 048
     Dates: start: 20110323, end: 20110614

REACTIONS (2)
  - PANCYTOPENIA [None]
  - HYPERSPLENISM [None]
